FAERS Safety Report 15560521 (Version 1)
Quarter: 2018Q4

REPORT INFORMATION
  Report Type: Spontaneous
  Country: US (occurrence: US)
  Receive Date: 20181022
  Receipt Date: 20181022
  Transmission Date: 20190205
  Serious: No
  Sender: FDA-Public Use
  Company Number: None

PATIENT
  Age: 46 Year
  Sex: Male

DRUGS (1)
  1. TACROLIMUS. [Suspect]
     Active Substance: TACROLIMUS
     Indication: TRANSPLANT
     Dosage: ?          OTHER FREQUENCY:2MG AM 1MG PM;?
     Route: 048
     Dates: start: 20170510

REACTIONS (2)
  - Bruxism [None]
  - Irritability [None]

NARRATIVE: CASE EVENT DATE: 20181001
